FAERS Safety Report 6835902-X (Version None)
Quarter: 2010Q3

REPORT INFORMATION
  Report Type: 
  Country: None (occurrence: None)
  Receive Date: 20100712
  Receipt Date: 20100712
  Transmission Date: 20110219
  Serious: Yes (Hospitalization)
  Sender: FDA-Public Use
  Company Number: None

PATIENT
  Sex: Male
  Weight: 111 kg

DRUGS (3)
  1. REVLIMID [Suspect]
     Indication: PROSTATE CANCER
     Dosage: 25MGQD POFOR 21/28 DAYS
     Route: 048
     Dates: start: 20080417
  2. KETOCONOZOLE [Suspect]
     Indication: PROSTATE CANCER
     Dosage: 400MG TID PO
     Route: 048
     Dates: start: 20080417
  3. WARFARIN SODIUM [Concomitant]

REACTIONS (3)
  - GASTROINTESTINAL HAEMORRHAGE [None]
  - HAEMOGLOBIN DECREASED [None]
  - INTERNATIONAL NORMALISED RATIO INCREASED [None]
